FAERS Safety Report 6137348-9 (Version None)
Quarter: 2009Q1

REPORT INFORMATION
  Report Type: 
  Country: None (occurrence: None)
  Receive Date: 20090330
  Receipt Date: 20081217
  Transmission Date: 20090719
  Serious: Yes (Disabling, Other)
  Sender: FDA-Public Use
  Company Number: NL-B.I. PHARMACEUTICALS,INC./RIDGEFIELD-2007-BP-12570YA

PATIENT
  Sex: Male
  Weight: 70 kg

DRUGS (2)
  1. OMNIC OCAS ORODISPERSABLE CR [Suspect]
     Indication: HYPERTONIC BLADDER
     Dosage: .4MG
     Route: 048
     Dates: start: 20061128, end: 20070125
  2. OMNIC OCAS ORODISPERSABLE CR [Suspect]
     Dosage: .4MG
     Route: 048
     Dates: start: 20070122, end: 20070205

REACTIONS (3)
  - ARTHRALGIA [None]
  - EYE DISCHARGE [None]
  - SJOGREN'S SYNDROME [None]
